FAERS Safety Report 4316435-1 (Version None)
Quarter: 2004Q1

REPORT INFORMATION
  Report Type: 
  Country: None (occurrence: None)
  Receive Date: 20040312
  Receipt Date: 20040312
  Transmission Date: 20041129
  Serious: Yes (Other)
  Sender: FDA-Public Use
  Company Number: None

PATIENT
  Age: 53 Year
  Sex: Female
  Weight: 83.9154 kg

DRUGS (2)
  1. EFFEXOR [Suspect]
     Indication: DEPRESSION
     Dosage: 50 MG TWICE PER
     Dates: start: 20030401, end: 20040227
  2. EFFEXOR [Suspect]
     Indication: HOT FLUSH
     Dosage: 50 MG TWICE PER
     Dates: start: 20030401, end: 20040227

REACTIONS (4)
  - HOT FLUSH [None]
  - HYPERSENSITIVITY [None]
  - MOBILITY DECREASED [None]
  - RHEUMATOID ARTHRITIS [None]
